FAERS Safety Report 18330112 (Version 6)
Quarter: 2022Q1

REPORT INFORMATION
  Report Type: Report from Study
  Country: NL (occurrence: NL)
  Receive Date: 20200930
  Receipt Date: 20220207
  Transmission Date: 20220423
  Serious: Yes (Hospitalization, Other)
  Sender: FDA-Public Use
  Company Number: NL-ABBVIE-19S-114-2805993-00

PATIENT
  Age: 73 Year
  Sex: Male

DRUGS (11)
  1. CARBIDOPA\LEVODOPA [Suspect]
     Active Substance: CARBIDOPA\LEVODOPA
     Indication: Parkinson^s disease
     Dosage: MD: 6.5ML, CD: 3.8ML/H, ED: 1.5 ML
     Route: 050
     Dates: start: 20171002
  2. CARBIDOPA\LEVODOPA [Suspect]
     Active Substance: CARBIDOPA\LEVODOPA
     Dosage: CD 2.0
     Route: 050
  3. CARBIDOPA\LEVODOPA [Suspect]
     Active Substance: CARBIDOPA\LEVODOPA
     Dosage: CD 2.5?24 HOUR ADMINISTRATION
     Route: 050
  4. CARBIDOPA\LEVODOPA [Suspect]
     Active Substance: CARBIDOPA\LEVODOPA
     Dosage: MD: 6.5, CD: 3.8, ED: 1.5
     Route: 050
  5. CARBIDOPA\LEVODOPA [Suspect]
     Active Substance: CARBIDOPA\LEVODOPA
     Dosage: MD 6.5 ML, CD 3.7 ML/HOUR, ED 1.5 ML, CND 2.5 ML/HOUR, END 1.0 ML
     Route: 050
  6. CARBIDOPA\LEVODOPA [Suspect]
     Active Substance: CARBIDOPA\LEVODOPA
     Dosage: MD 6.5 ML, CD 3.7 ML/H, ED 1.5 ML
     Route: 050
  7. CARBIDOPA\LEVODOPA [Suspect]
     Active Substance: CARBIDOPA\LEVODOPA
     Dosage: MD 6.5 ML, CD 3.7 ML/H, ED 1.5 ML
     Route: 050
  8. CARBIDOPA\LEVODOPA [Suspect]
     Active Substance: CARBIDOPA\LEVODOPA
     Dosage: MD 6.5 ML; CD 4.4 ML/H; ED 1.5 ML; CND 3.4 ML/H
     Route: 050
  9. MOVICOLON [Concomitant]
     Active Substance: POLYETHYLENE GLYCOL 3350\POTASSIUM CHLORIDE\SODIUM BICARBONATE\SODIUM CHLORIDE
     Indication: Constipation
     Route: 065
  10. LAXATIA [Concomitant]
     Indication: Abnormal faeces
  11. POLYETHYLENE GLYCOLS [Concomitant]
     Active Substance: POLYETHYLENE GLYCOLS
     Indication: Product used for unknown indication

REACTIONS (48)
  - Cardiac disorder [Recovered/Resolved]
  - Myocardial infarction [Recovered/Resolved]
  - Tooth extraction [Unknown]
  - Balance disorder [Not Recovered/Not Resolved]
  - Dyschezia [Recovered/Resolved]
  - Mastication disorder [Unknown]
  - Dyschezia [Recovered/Resolved]
  - Tooth disorder [Unknown]
  - Gastrointestinal hypomotility [Recovering/Resolving]
  - Abnormal dreams [Not Recovered/Not Resolved]
  - Tremor [Not Recovered/Not Resolved]
  - Muscle rigidity [Not Recovered/Not Resolved]
  - Constipation [Not Recovered/Not Resolved]
  - Abdominal pain [Recovering/Resolving]
  - Therapeutic product effect incomplete [Not Recovered/Not Resolved]
  - On and off phenomenon [Recovered/Resolved]
  - Dyskinesia [Recovered/Resolved]
  - Stoma site discharge [Recovered/Resolved]
  - Bradykinesia [Recovered/Resolved]
  - On and off phenomenon [Not Recovered/Not Resolved]
  - Bradykinesia [Not Recovered/Not Resolved]
  - Stoma site extravasation [Not Recovered/Not Resolved]
  - Musculoskeletal stiffness [Not Recovered/Not Resolved]
  - Dystonia [Not Recovered/Not Resolved]
  - Fine motor skill dysfunction [Recovering/Resolving]
  - Flatulence [Not Recovered/Not Resolved]
  - Hypophagia [Recovering/Resolving]
  - Muscle spasms [Unknown]
  - Insomnia [Not Recovered/Not Resolved]
  - Somnolence [Not Recovered/Not Resolved]
  - Troponin increased [Not Recovered/Not Resolved]
  - Hypersensitivity [Recovered/Resolved]
  - Stoma site infection [Recovered/Resolved]
  - Gastric disorder [Not Recovered/Not Resolved]
  - Gastrointestinal disorder [Not Recovered/Not Resolved]
  - Decreased appetite [Recovered/Resolved]
  - Disorientation [Not Recovered/Not Resolved]
  - Memory impairment [Not Recovered/Not Resolved]
  - Fibroma [Not Recovered/Not Resolved]
  - Confusional state [Unknown]
  - Parkinson^s disease [Not Recovered/Not Resolved]
  - Sleep disorder [Unknown]
  - Unevaluable event [Not Recovered/Not Resolved]
  - Pain in extremity [Not Recovered/Not Resolved]
  - Weight decreased [Recovered/Resolved]
  - Pain [Unknown]
  - Myalgia [Not Recovered/Not Resolved]
  - Dysstasia [Not Recovered/Not Resolved]

NARRATIVE: CASE EVENT DATE: 20200801
